FAERS Safety Report 15983584 (Version 1)
Quarter: 2019Q1

REPORT INFORMATION
  Report Type: Spontaneous
  Country: US (occurrence: US)
  Receive Date: 20190125
  Receipt Date: 20190125
  Transmission Date: 20190418
  Serious: Yes (Hospitalization)
  Sender: FDA-Public Use
  Company Number: None

PATIENT
  Sex: Female

DRUGS (9)
  1. PLAQUENIL [Concomitant]
     Active Substance: HYDROXYCHLOROQUINE SULFATE
  2. CELEBREX [Concomitant]
     Active Substance: CELECOXIB
  3. CALCIUM CHEW [Concomitant]
  4. XELJANZ [Suspect]
     Active Substance: TOFACITINIB CITRATE
     Indication: RHEUMATOID ARTHRITIS
     Route: 048
     Dates: start: 20170629
  5. FOSAMAX [Concomitant]
     Active Substance: ALENDRONATE SODIUM
  6. BABY ASA [Concomitant]
     Active Substance: ASPIRIN
  7. MOBIC [Concomitant]
     Active Substance: MELOXICAM
  8. VITAMIN D [Suspect]
     Active Substance: CHOLECALCIFEROL
  9. SYNTHROID [Concomitant]
     Active Substance: LEVOTHYROXINE SODIUM

REACTIONS (1)
  - Wrist surgery [None]

NARRATIVE: CASE EVENT DATE: 2019
